FAERS Safety Report 5114744-X (Version None)
Quarter: 2006Q3

REPORT INFORMATION
  Report Type: 
  Country: None (occurrence: None)
  Receive Date: 20060921
  Receipt Date: 20060915
  Transmission Date: 20061208
  Serious: Yes (Other)
  Sender: FDA-Public Use
  Company Number: SPV1-2006-00839

PATIENT
  Age: 61 Year
  Sex: Male

DRUGS (1)
  1. ANAGRELIDE HCL [Suspect]
     Dosage: 0.5 MG, 2 CAPSULES DAILY,
     Dates: start: 20060531

REACTIONS (5)
  - LEUKOCYTOSIS [None]
  - MYELOCYTOSIS [None]
  - MYELOFIBROSIS [None]
  - NEUTROPHIL COUNT INCREASED [None]
  - SPLENOMEGALY [None]
